FAERS Safety Report 18602841 (Version 5)
Quarter: 2021Q1

REPORT INFORMATION
  Report Type: Report from Study
  Country: US (occurrence: US)
  Receive Date: 20201210
  Receipt Date: 20210223
  Transmission Date: 20210419
  Serious: Yes (Hospitalization)
  Sender: FDA-Public Use
  Company Number: US-SEATTLE GENETICS-2020SGN05435

PATIENT
  Sex: Female

DRUGS (1)
  1. TUCATINIB [Suspect]
     Active Substance: TUCATINIB
     Indication: BREAST CANCER FEMALE
     Dosage: UNK
     Route: 048

REACTIONS (9)
  - Brain tumour operation [Unknown]
  - Dry eye [Unknown]
  - Fatigue [Unknown]
  - Skin irritation [Unknown]
  - Skin disorder [Recovered/Resolved]
  - Pneumonia [Unknown]
  - Pain in extremity [Unknown]
  - Dry mouth [Unknown]
  - Onychalgia [Unknown]
